FAERS Safety Report 10901866 (Version 5)
Quarter: 2015Q3

REPORT INFORMATION
  Report Type: Report from Study
  Country: DE (occurrence: DE)
  Receive Date: 20150310
  Receipt Date: 20150821
  Transmission Date: 20151125
  Serious: Yes (Death, Life-Threatening, Hospitalization)
  Sender: FDA-Public Use
  Company Number: DE-GLAXOSMITHKLINE INC.-DE2015029858

PATIENT
  Age: 58 Year
  Sex: Male
  Weight: 65 kg

DRUGS (20)
  1. THIAMAZOL [Concomitant]
     Active Substance: METHIMAZOLE
     Indication: HYPERTHYROIDISM
     Dosage: 20 MG, 1D
     Route: 048
     Dates: start: 20140430
  2. ATROVENT [Concomitant]
     Active Substance: IPRATROPIUM BROMIDE
     Indication: CHRONIC OBSTRUCTIVE PULMONARY DISEASE
     Dosage: 250 ?G, Q4D
     Route: 055
     Dates: start: 20140430
  3. MEROPENEM. [Concomitant]
     Active Substance: MEROPENEM
     Indication: CHRONIC OBSTRUCTIVE PULMONARY DISEASE
     Dosage: 1 G, TID
     Route: 042
     Dates: start: 20150224
  4. KETAMIN [Concomitant]
     Active Substance: KETAMINE
     Indication: MEDICAL INDUCTION OF COMA
     Dosage: 500 MG, CO
     Route: 042
     Dates: start: 20150211
  5. PANTOPRAZOLE SODIUM. [Concomitant]
     Active Substance: PANTOPRAZOLE SODIUM
     Indication: PROPHYLAXIS
     Dosage: 40 MG, 1D
     Route: 048
     Dates: start: 20140430
  6. MEROPENEM. [Concomitant]
     Active Substance: MEROPENEM
     Indication: CHRONIC OBSTRUCTIVE PULMONARY DISEASE
  7. METFORMIN [Concomitant]
     Active Substance: METFORMIN HYDROCHLORIDE
     Indication: TYPE 2 DIABETES MELLITUS
     Dosage: 1000 MG, 1D
     Route: 048
     Dates: start: 20140430
  8. FLUTICASONE FUROATE + VILANTEROL TRIFENATATE [Suspect]
     Active Substance: FLUTICASONE FUROATE\VILANTEROL TRIFENATATE
     Indication: CHRONIC OBSTRUCTIVE PULMONARY DISEASE
     Dosage: 1 PUFF(S), 1D
     Route: 055
     Dates: start: 20141007, end: 20150210
  9. PREDNISOLON [Concomitant]
     Active Substance: PREDNISOLONE
     Indication: CHRONIC OBSTRUCTIVE PULMONARY DISEASE
     Route: 048
     Dates: start: 20150211, end: 20150518
  10. ULTIBRO [Concomitant]
     Active Substance: GLYCOPYRRONIUM\INDACATEROL
     Indication: CHRONIC OBSTRUCTIVE PULMONARY DISEASE
     Dosage: 85 ?G, 1D
     Route: 055
     Dates: start: 20140619, end: 20141006
  11. INSUMAN [Concomitant]
     Active Substance: INSULIN HUMAN
     Indication: DIABETES MELLITUS
     Dosage: 50 IU, CO
     Route: 042
     Dates: start: 20150211, end: 20150518
  12. FUROSEMID [Concomitant]
     Active Substance: FUROSEMIDE
     Indication: CARDIAC FAILURE
     Dosage: 40 MG, 1D
     Route: 048
     Dates: start: 20140430
  13. MOVICOL [Concomitant]
     Active Substance: POLYETHYLENE GLYCOL 3350\POTASSIUM CHLORIDE\SODIUM BICARBONATE\SODIUM CHLORIDE
     Indication: CONSTIPATION
     Dosage: 10 MG, 1D
     Route: 048
     Dates: start: 20140430
  14. MCP [Concomitant]
     Active Substance: METOCLOPRAMIDE HYDROCHLORIDE
     Dosage: 10 MG, TID
     Route: 042
     Dates: start: 20150211
  15. OXYGEN THERAPY [Concomitant]
     Active Substance: OXYGEN
     Indication: CHRONIC OBSTRUCTIVE PULMONARY DISEASE
     Dosage: 2 L, Q4D
     Route: 055
     Dates: start: 20140430
  16. SALBUTAMOL [Concomitant]
     Active Substance: ALBUTEROL
     Indication: CHRONIC OBSTRUCTIVE PULMONARY DISEASE
     Dosage: 100 MG, QID
     Route: 055
     Dates: start: 20140430, end: 20150922
  17. UNACID [Concomitant]
     Active Substance: AMPICILLIN SODIUM\SULBACTAM SODIUM
     Indication: CHRONIC OBSTRUCTIVE PULMONARY DISEASE
     Dosage: 3 G, CO
     Route: 042
     Dates: start: 20150211, end: 20150217
  18. DOMPERIDONE [Concomitant]
     Active Substance: DOMPERIDONE
     Indication: SEDATION
     Dosage: 10 MG, TID
     Route: 048
     Dates: start: 20150211
  19. ENOXAPARIN [Concomitant]
     Active Substance: ENOXAPARIN
     Indication: ANTICOAGULANT THERAPY
     Dosage: 0.4 ML, 1D
     Route: 058
     Dates: start: 20150211
  20. MIDAZOLAM [Concomitant]
     Active Substance: MIDAZOLAM\MIDAZOLAM HYDROCHLORIDE
     Indication: MEDICAL INDUCTION OF COMA
     Dosage: 100 MG, CO
     Route: 042
     Dates: start: 20150211

REACTIONS (1)
  - Chronic obstructive pulmonary disease [Fatal]

NARRATIVE: CASE EVENT DATE: 20150211
